FAERS Safety Report 15285262 (Version 2)
Quarter: 2018Q3

REPORT INFORMATION
  Report Type: Spontaneous
  Country: US (occurrence: US)
  Receive Date: 20180816
  Receipt Date: 20180828
  Transmission Date: 20181010
  Serious: Yes (Death)
  Sender: FDA-Public Use
  Company Number: US-JNJFOC-20180818677

PATIENT
  Sex: Male

DRUGS (10)
  1. VITAMIN B12 [Concomitant]
     Active Substance: CYANOCOBALAMIN
  2. LORAZEPAM. [Concomitant]
     Active Substance: LORAZEPAM
  3. PANTOPRAZOLE [Concomitant]
     Active Substance: PANTOPRAZOLE
  4. TAMSULOSIN [Concomitant]
     Active Substance: TAMSULOSIN
  5. IMBRUVICA [Suspect]
     Active Substance: IBRUTINIB
     Indication: MANTLE CELL LYMPHOMA
     Route: 048
     Dates: start: 20180202, end: 2018
  6. ALLOPURINOL. [Concomitant]
     Active Substance: ALLOPURINOL
  7. METOPROLOL. [Concomitant]
     Active Substance: METOPROLOL
  8. ACYCLOVIR. [Concomitant]
     Active Substance: ACYCLOVIR
  9. FUROSEMIDE. [Concomitant]
     Active Substance: FUROSEMIDE
  10. IMBRUVICA [Suspect]
     Active Substance: IBRUTINIB
     Indication: MANTLE CELL LYMPHOMA
     Route: 048
     Dates: start: 20180611

REACTIONS (1)
  - Disease progression [Fatal]
